FAERS Safety Report 5360359-8 (Version None)
Quarter: 2007Q2

REPORT INFORMATION
  Report Type: 
  Country: None (occurrence: None)
  Receive Date: 20070614
  Receipt Date: 20070606
  Transmission Date: 20071010
  Serious: Yes (Other)
  Sender: FDA-Public Use
  Company Number: 2007SP011318

PATIENT
  Age: 56 Year
  Sex: Male

DRUGS (2)
  1. PEG-INTRON [Suspect]
     Indication: HEPATITIS C
  2. RIBAVIRIN [Suspect]
     Indication: HEPATITIS C
     Dosage: PO
     Route: 048

REACTIONS (4)
  - ERYTHEMA [None]
  - IMPAIRED HEALING [None]
  - PYODERMA GANGRENOSUM [None]
  - ULCER [None]
